FAERS Safety Report 6268946-X (Version None)
Quarter: 2009Q3

REPORT INFORMATION
  Report Type: 
  Country: None (occurrence: None)
  Receive Date: 20090713
  Receipt Date: 20090713
  Transmission Date: 20100115
  Serious: Yes (Other)
  Sender: FDA-Public Use
  Company Number: None

PATIENT
  Age: 57 Year
  Weight: 68.0396 kg

DRUGS (1)
  1. TRI-LUMA [Suspect]
     Indication: SKIN DISCOLOURATION

REACTIONS (2)
  - SKIN DISCOLOURATION [None]
  - SKIN DISORDER [None]
